FAERS Safety Report 5528794-2 (Version None)
Quarter: 2007Q4

REPORT INFORMATION
  Report Type: 
  Country: None (occurrence: None)
  Receive Date: 20071119
  Receipt Date: 20070731
  Transmission Date: 20080405
  Serious: No
  Sender: FDA-Public Use
  Company Number: TPA2007A01702

PATIENT
  Age: 58 Year
  Sex: Female
  Weight: 97.5234 kg

DRUGS (7)
  1. ROZEREM [Suspect]
     Dosage: PER ORAL
     Route: 048
  2. OXYCONTIN [Concomitant]
  3. ULTRACET [Concomitant]
  4. ATORVASTATIN CALCIUM [Concomitant]
  5. NADOLOL [Concomitant]
  6. NORTRIPTYLINE HCL [Concomitant]
  7. FOLIC ACID [Concomitant]

REACTIONS (1)
  - DRUG INEFFECTIVE [None]
